FAERS Safety Report 9248121 (Version 1)
Quarter: 2013Q2

REPORT INFORMATION
  Report Type: Spontaneous
  Country: US (occurrence: None)
  Receive Date: 20130419
  Receipt Date: 20130419
  Transmission Date: 20140414
  Serious: Yes (Hospitalization)
  Sender: FDA-Public Use
  Company Number: None

PATIENT
  Age: 48 Year
  Sex: Male
  Weight: 145.6 kg

DRUGS (16)
  1. DAPTOMYCIN [Suspect]
     Indication: OSTEOMYELITIS
     Route: 041
     Dates: start: 20130324, end: 20130417
  2. OXYCODONE/APAP [Concomitant]
  3. ALPRAZOLAM [Concomitant]
  4. METHADONE [Concomitant]
  5. PANTOPRAZOLE [Concomitant]
  6. METOPROLOL TARTRATE [Concomitant]
  7. TESTOSTERONE GEL [Concomitant]
  8. NIFEDIPINE ER [Concomitant]
  9. SERTRALINE [Concomitant]
  10. AGRENOX [Concomitant]
  11. ROSUVASTATIN [Concomitant]
  12. TIZANIDINE [Concomitant]
  13. LISINOPRIL [Concomitant]
  14. PIPERACILLIN/TAZOBACTAM [Concomitant]
  15. MULTIVITAMIN [Concomitant]
  16. ACETAMINOPHEN [Concomitant]

REACTIONS (1)
  - Eosinophilic pneumonia [None]
